FAERS Safety Report 10502317 (Version 1)
Quarter: 2014Q4

REPORT INFORMATION
  Report Type: Spontaneous
  Country: US (occurrence: None)
  Receive Date: 20141003
  Receipt Date: 20141003
  Transmission Date: 20150528
  Serious: Yes (Other)
  Sender: FDA-Public Use
  Company Number: US-001000

PATIENT
  Age: 46 Year
  Sex: Female

DRUGS (1)
  1. GATTEX [Suspect]
     Active Substance: TEDUGLUTIDE\WATER
     Indication: SHORT-BOWEL SYNDROME
     Dosage: ONCE A DAY
     Route: 058
     Dates: start: 20140410, end: 201409

REACTIONS (15)
  - Flatulence [None]
  - Anaemia [None]
  - Vomiting [None]
  - Weight decreased [None]
  - Feeling abnormal [None]
  - Abdominal pain [None]
  - Abdominal distension [None]
  - Eating disorder [None]
  - Injection site pain [None]
  - Mental disorder [None]
  - Stoma complication [None]
  - Nausea [None]
  - Abdominal discomfort [None]
  - Nephropathy [None]
  - Gastrointestinal stoma output decreased [None]

NARRATIVE: CASE EVENT DATE: 20140406
